FAERS Safety Report 17229196 (Version 1)
Quarter: 2020Q1

REPORT INFORMATION
  Report Type: Spontaneous
  Country: US (occurrence: US)
  Receive Date: 20200103
  Receipt Date: 20200103
  Transmission Date: 20200409
  Serious: No
  Sender: FDA-Public Use
  Company Number: US-ALKERMES INC.-ALK-2019-006202

PATIENT
  Sex: Male

DRUGS (3)
  1. VIVITROL [Suspect]
     Active Substance: NALTREXONE
     Indication: PRODUCT USED FOR UNKNOWN INDICATION
     Dosage: 380 MG, QMO
     Route: 030
  2. BENZODIAZEPINE RELATED DRUGS [Concomitant]
     Active Substance: BENZODIAZEPINE
     Indication: TIC
     Dosage: 8 MG, UNK
     Dates: start: 2018
  3. BENZODIAZEPINE RELATED DRUGS [Concomitant]
     Active Substance: BENZODIAZEPINE
     Dosage: 5 MG, UNK

REACTIONS (1)
  - Tic [Unknown]

NARRATIVE: CASE EVENT DATE: 2018
